FAERS Safety Report 9311277 (Version 1)
Quarter: 2013Q2

REPORT INFORMATION
  Report Type: Spontaneous
  Country: US (occurrence: US)
  Receive Date: 20130528
  Receipt Date: 20130528
  Transmission Date: 20140414
  Serious: Yes (Hospitalization)
  Sender: FDA-Public Use
  Company Number: US-SANOFI-AVENTIS-2013SA052750

PATIENT
  Age: 71 Year
  Sex: Female

DRUGS (5)
  1. LANTUS SOLOSTAR [Suspect]
     Indication: TYPE 2 DIABETES MELLITUS
     Dosage: DOSE:15 UNIT(S)
     Route: 058
     Dates: start: 201206
  2. SOLOSTAR [Suspect]
     Indication: TYPE 2 DIABETES MELLITUS
     Dates: start: 201206
  3. NOVOLOG [Suspect]
  4. GLIPIZIDE [Suspect]
  5. HUMULIN R [Suspect]

REACTIONS (8)
  - Pneumonia [Unknown]
  - Fungal infection [Unknown]
  - pH urine decreased [Unknown]
  - Pruritus [Unknown]
  - Blood glucose decreased [Unknown]
  - Drug hypersensitivity [Unknown]
  - Hypertonic bladder [Unknown]
  - Blood glucose increased [Unknown]
